FAERS Safety Report 6697785-0 (Version None)
Quarter: 2010Q2

REPORT INFORMATION
  Report Type: 
  Country: None (occurrence: None)
  Receive Date: 20100423
  Receipt Date: 20100414
  Transmission Date: 20101027
  Serious: Yes (Hospitalization)
  Sender: FDA-Public Use
  Company Number: 010198

PATIENT
  Sex: Female

DRUGS (4)
  1. KEPPRA [Suspect]
     Dosage: (1500MG THERAPY)
  2. MARCUMAR [Concomitant]
  3. LEVOTHYROXINE SODIUM [Concomitant]
  4. MIRTAZAPINE [Concomitant]

REACTIONS (1)
  - HEPATOTOXICITY [None]
